FAERS Safety Report 18781310 (Version 1)
Quarter: 2021Q1

REPORT INFORMATION
  Report Type: Spontaneous
  Country: US (occurrence: US)
  Receive Date: 20210124
  Receipt Date: 20210124
  Transmission Date: 20210419
  Serious: Yes (Hospitalization)
  Sender: FDA-Public Use
  Company Number: None

PATIENT
  Age: 28 Year
  Sex: Female

DRUGS (1)
  1. KLONOPIN [Suspect]
     Active Substance: CLONAZEPAM
     Indication: ANXIETY
     Dosage: ?          QUANTITY:3 TABLET(S);?
     Route: 048

REACTIONS (11)
  - Anxiety [None]
  - Irritability [None]
  - Night sweats [None]
  - Myalgia [None]
  - Mood altered [None]
  - Visual impairment [None]
  - Withdrawal syndrome [None]
  - Nausea [None]
  - Panic attack [None]
  - Peripheral coldness [None]
  - Dizziness [None]
